FAERS Safety Report 17001935 (Version 2)
Quarter: 2019Q4

REPORT INFORMATION
  Report Type: Report from Study
  Country: JP (occurrence: JP)
  Receive Date: 20191106
  Receipt Date: 20191206
  Transmission Date: 20200122
  Serious: Yes (Hospitalization)
  Sender: FDA-Public Use
  Company Number: JP-ACTELION-A-CH2019-197556

PATIENT
  Age: 80 Year
  Sex: Female

DRUGS (10)
  1. PREDONINE [Concomitant]
     Active Substance: PREDNISOLONE
  2. RACOL [Concomitant]
     Active Substance: AMINO ACIDS\DEXTROSE\ELECTROLYTES NOS
  3. JUVELA N [Concomitant]
     Active Substance: TOCOPHERYL NICOTINATE, D-.ALPHA.
  4. OPALMON [Concomitant]
     Active Substance: LIMAPROST
  5. NORSPAN [Concomitant]
     Active Substance: BUPRENORPHINE
  6. PLETAAL [Concomitant]
     Active Substance: CILOSTAZOL
  7. TRACLEER [Suspect]
     Active Substance: BOSENTAN
     Indication: SCLERODERMA ASSOCIATED DIGITAL ULCER
     Dosage: 62.5 MG, BID
     Route: 048
     Dates: start: 20160118, end: 20181206
  8. TAKEPRON [Concomitant]
     Active Substance: LANSOPRAZOLE
  9. TAKECAB [Concomitant]
     Active Substance: VONOPRAZAN FUMURATE
  10. DEPAKENE [Concomitant]
     Active Substance: VALPROIC ACID

REACTIONS (3)
  - Oesophagectomy [Unknown]
  - Oesophageal carcinoma [Recovered/Resolved]
  - Oesophageal anastomosis [Unknown]

NARRATIVE: CASE EVENT DATE: 20181129
